FAERS Safety Report 12371894 (Version 1)
Quarter: 2016Q2

REPORT INFORMATION
  Report Type: Spontaneous
  Country: US (occurrence: US)
  Receive Date: 20160516
  Receipt Date: 20160516
  Transmission Date: 20160815
  Serious: No
  Sender: FDA-Public Use
  Company Number: US-GLAXOSMITHKLINE-US2016068391

PATIENT
  Sex: Female

DRUGS (2)
  1. FLONASE [Suspect]
     Active Substance: FLUTICASONE PROPIONATE
     Indication: UPPER-AIRWAY COUGH SYNDROME
     Dosage: UNK
     Dates: start: 201605, end: 201605
  2. FLONASE [Suspect]
     Active Substance: FLUTICASONE PROPIONATE
     Indication: BRONCHOSPASM

REACTIONS (2)
  - Drug ineffective for unapproved indication [Unknown]
  - Headache [Unknown]
